FAERS Safety Report 24561262 (Version 1)
Quarter: 2024Q4

REPORT INFORMATION
  Report Type: Spontaneous
  Country: US (occurrence: US)
  Receive Date: 20241029
  Receipt Date: 20241029
  Transmission Date: 20250114
  Serious: Yes (Other)
  Sender: GRIFOLS
  Company Number: US-IGSA-BIG0031336

PATIENT
  Age: 48 Year
  Sex: Male

DRUGS (1)
  1. VISTASEAL [Suspect]
     Active Substance: FIBRINOGEN HUMAN\HUMAN THROMBIN
     Indication: Surgery
     Dosage: UNK

REACTIONS (1)
  - Pneumonitis aspiration [Recovered/Resolved]

NARRATIVE: CASE EVENT DATE: 20220726
